FAERS Safety Report 17230448 (Version 1)
Quarter: 2020Q1

REPORT INFORMATION
  Report Type: Spontaneous
  Country: AT (occurrence: AT)
  Receive Date: 20200103
  Receipt Date: 20200103
  Transmission Date: 20200409
  Serious: Yes (Other)
  Sender: FDA-Public Use
  Company Number: AT-MYLANLABS-2020M1000132

PATIENT
  Age: 74 Year
  Sex: Male

DRUGS (5)
  1. IRINOTECAN [Suspect]
     Active Substance: IRINOTECAN
     Indication: PANCREATIC CARCINOMA
     Dosage: UNK
     Route: 065
  2. FOLIC ACID. [Suspect]
     Active Substance: FOLIC ACID
     Indication: PANCREATIC CARCINOMA
     Dosage: UNK
     Route: 065
  3. FLUOROURACIL MYLAN [Suspect]
     Active Substance: FLUOROURACIL
     Indication: PANCREATIC CARCINOMA
     Dosage: UNK, CYCLE,  (FIRST CYCLE)
     Route: 065
     Dates: start: 201609
  4. GEMCITABINE. [Suspect]
     Active Substance: GEMCITABINE
     Indication: PANCREATIC CARCINOMA
     Dosage: UNK (FIRST CYCLE)
     Route: 065
     Dates: start: 201511
  5. PACLITAXEL. [Suspect]
     Active Substance: PACLITAXEL
     Indication: PANCREATIC CARCINOMA
     Dosage: UNK
     Route: 065
     Dates: start: 201511

REACTIONS (5)
  - Neuropathy peripheral [Unknown]
  - Malignant neoplasm progression [Unknown]
  - Ascites [Unknown]
  - Product use in unapproved indication [Unknown]
  - Pancreatic carcinoma [Unknown]
